FAERS Safety Report 6546946-X (Version None)
Quarter: 2010Q1

REPORT INFORMATION
  Report Type: 
  Country: None (occurrence: None)
  Receive Date: 20100122
  Receipt Date: 20100118
  Transmission Date: 20100710
  Serious: Yes (Death, Hospitalization)
  Sender: FDA-Public Use
  Company Number: A0788662A

PATIENT
  Age: 47 Year
  Sex: Male

DRUGS (1)
  1. AVANDIA [Suspect]
     Dosage: 8MG PER DAY
     Route: 048
     Dates: start: 20060314, end: 20070420

REACTIONS (3)
  - CONVULSION [None]
  - ISCHAEMIC STROKE [None]
  - LIVER INJURY [None]
